FAERS Safety Report 5432997-5 (Version None)
Quarter: 2007Q3

REPORT INFORMATION
  Report Type: 
  Country: None (occurrence: None)
  Receive Date: 20070831
  Receipt Date: 20070827
  Transmission Date: 20080115
  Serious: Yes (Hospitalization)
  Sender: FDA-Public Use
  Company Number: PHNR2007AU01763

PATIENT
  Sex: Female

DRUGS (1)
  1. ZOMETA [Suspect]
     Indication: MULTIPLE MYELOMA

REACTIONS (6)
  - IMPAIRED HEALING [None]
  - ORAL INTAKE REDUCED [None]
  - ORAL SURGERY [None]
  - OSTEONECROSIS [None]
  - TOOTH EXTRACTION [None]
  - WEIGHT DECREASED [None]
